FAERS Safety Report 25124568 (Version 5)
Quarter: 2025Q3

REPORT INFORMATION
  Report Type: Report from Study
  Country: US (occurrence: US)
  Receive Date: 20250326
  Receipt Date: 20250724
  Transmission Date: 20251020
  Serious: Yes (Hospitalization)
  Sender: ROCHE
  Company Number: US-ROCHE-10000035470

PATIENT
  Age: 79 Year
  Sex: Female

DRUGS (7)
  1. XOLAIR PFS [Suspect]
     Active Substance: OMALIZUMAB
     Indication: Urticaria
     Dosage: INJECT 300MG SUBCUTANEOUSLY EVERY 14 DAY(S)
     Route: 058
  2. XOLAIR PFS [Suspect]
     Active Substance: OMALIZUMAB
     Indication: Pruritus
     Route: 058
  3. XOLAIR PFS [Suspect]
     Active Substance: OMALIZUMAB
     Indication: Pemphigoid
  4. XOLAIR PFS [Suspect]
     Active Substance: OMALIZUMAB
     Indication: Erythema
  5. XOLAIR PFS [Suspect]
     Active Substance: OMALIZUMAB
     Indication: Autoimmune disorder
  6. XOLAIR PFS [Suspect]
     Active Substance: OMALIZUMAB
     Indication: Ear pruritus
  7. XOLAIR PFS [Suspect]
     Active Substance: OMALIZUMAB
     Indication: Rash

REACTIONS (5)
  - Off label use [Unknown]
  - Pelvic fracture [Unknown]
  - Hip fracture [Unknown]
  - Fall [Unknown]
  - Lower limb fracture [Unknown]
